FAERS Safety Report 4277688-1 (Version None)
Quarter: 2004Q1

REPORT INFORMATION
  Report Type: 
  Country: None (occurrence: None)
  Receive Date: 20040121
  Receipt Date: 20040105
  Transmission Date: 20041129
  Serious: Yes (Other)
  Sender: FDA-Public Use
  Company Number: DSA_23871_2004

PATIENT
  Age: 64 Year
  Sex: Male

DRUGS (6)
  1. ENALAPRIL MALEATE [Suspect]
  2. DIGOXIN [Suspect]
     Dosage: 250 MCG QD PO
     Route: 048
  3. SPIRONOLACTONE [Suspect]
     Dosage: 25 MG QD
  4. FUROSEMIDE [Suspect]
  5. DOXAZOSIN MESYLATE [Concomitant]
  6. WARFARIN SODIUM [Concomitant]

REACTIONS (15)
  - ALPHA HAEMOLYTIC STREPTOCOCCAL INFECTION [None]
  - ANOREXIA [None]
  - AORTIC VALVE INCOMPETENCE [None]
  - ATRIAL FIBRILLATION [None]
  - BLOOD PRESSURE DECREASED [None]
  - BLOOD SODIUM DECREASED [None]
  - CARDIAC MURMUR [None]
  - CARDIAC VALVE VEGETATION [None]
  - CARDIOACTIVE DRUG LEVEL INCREASED [None]
  - DEHYDRATION [None]
  - DIZZINESS [None]
  - ENDOCARDITIS [None]
  - MALAISE [None]
  - RENAL IMPAIRMENT [None]
  - VISION BLURRED [None]
